FAERS Safety Report 9756288 (Version 1)
Quarter: 2013Q4

REPORT INFORMATION
  Report Type: Spontaneous
  Country: US (occurrence: US)
  Receive Date: 20131213
  Receipt Date: 20131213
  Transmission Date: 20140711
  Serious: No
  Sender: FDA-Public Use
  Company Number: US-GLAXOSMITHKLINE-A1037616A

PATIENT
  Age: 43 Year
  Sex: Male

DRUGS (6)
  1. NICODERM CQ [Suspect]
     Indication: EX-TOBACCO USER
     Dates: start: 2011
  2. NICORETTE OTC, UNSPECIFIED [Suspect]
     Indication: EX-TOBACCO USER
     Dates: start: 2011
  3. NICODERM CQ CLEAR 21MG [Suspect]
     Indication: EX-TOBACCO USER
     Dates: start: 20130813
  4. LORATADINE [Concomitant]
  5. REMERON [Concomitant]
  6. UNSPECIFIED MEDICATION [Concomitant]
     Indication: DEPRESSION

REACTIONS (6)
  - Headache [Recovering/Resolving]
  - Energy increased [Unknown]
  - Abnormal dreams [Recovered/Resolved]
  - Depression [Recovered/Resolved]
  - Condition aggravated [Recovered/Resolved]
  - Overdose [Unknown]
